FAERS Safety Report 9710352 (Version 2)
Quarter: 2013Q4

REPORT INFORMATION
  Report Type: Spontaneous
  Country: US (occurrence: US)
  Receive Date: 20131126
  Receipt Date: 20131126
  Transmission Date: 20140711
  Serious: No
  Sender: FDA-Public Use
  Company Number: US-BRISTOL-MYERS SQUIBB COMPANY-18820050

PATIENT
  Age: 58 Year
  Sex: Female
  Weight: 60.77 kg

DRUGS (2)
  1. BYETTA [Suspect]
     Indication: TYPE 2 DIABETES MELLITUS
     Dosage: INCREASED TO 10MCG
     Route: 058
     Dates: start: 20111008, end: 20130402
  2. LANTUS [Concomitant]
     Dosage: LANTUS SOLOSTAR PEN

REACTIONS (1)
  - Abdominal discomfort [Recovered/Resolved]
